FAERS Safety Report 8820544 (Version 3)
Quarter: 2012Q4

REPORT INFORMATION
  Report Type: 
  Country: DE (occurrence: DE)
  Receive Date: 20121002
  Receipt Date: 20121205
  Transmission Date: 20130627
  Serious: Yes (Hospitalization)
  Sender: FDA-Public Use
  Company Number: DE-UCBSA-067725

PATIENT
  Sex: Female

DRUGS (6)
  1. KEPPRA [Suspect]
     Dosage: UNKNOWND DOSE
     Route: 048
  2. KEPPRA [Suspect]
     Route: 048
     Dates: start: 201010
  3. KEPPRA [Suspect]
     Dosage: 500 MG (1.5 IN THE MORNING AND 1.5 IN THE EVENING)
  4. CARBAMAZAPINE [Concomitant]
  5. REMERGRIL [Concomitant]
     Indication: DEPRESSION
  6. LEVETIRACETAM [Concomitant]

REACTIONS (8)
  - Gastritis [Unknown]
  - Abdominal discomfort [Recovering/Resolving]
  - Drug hypersensitivity [Unknown]
  - Decreased appetite [Unknown]
  - Weight decreased [Unknown]
  - Depressed mood [Not Recovered/Not Resolved]
  - Sleep disorder [Not Recovered/Not Resolved]
  - Depression [Unknown]
